FAERS Safety Report 19264659 (Version 8)
Quarter: 2021Q4

REPORT INFORMATION
  Report Type: Report from Study
  Country: DE (occurrence: DE)
  Receive Date: 20210517
  Receipt Date: 20211213
  Transmission Date: 20220303
  Serious: Yes (Hospitalization, Other)
  Sender: FDA-Public Use
  Company Number: DE-BRISTOL-MYERS SQUIBB COMPANY-BMS-2021-045443

PATIENT
  Age: 81 Year
  Sex: Female
  Weight: 53.3 kg

DRUGS (4)
  1. NIVOLUMAB [Suspect]
     Active Substance: NIVOLUMAB
     Indication: Adenocarcinoma gastric
     Dosage: 155.10 MILLIGRAM, Q2WK
     Route: 042
     Dates: start: 20210218
  2. IPILIMUMAB [Suspect]
     Active Substance: IPILIMUMAB
     Indication: Adenocarcinoma gastric
     Dosage: 51.70 MILLIGRAM, Q6WK
     Route: 042
     Dates: start: 20210218
  3. LEVOTHYROXINE SODIUM\POTASSIUM IODIDE [Concomitant]
     Active Substance: LEVOTHYROXINE SODIUM\POTASSIUM IODIDE
     Indication: Hypothyroidism
     Dosage: UNK
     Route: 065
     Dates: start: 20210327, end: 20210331
  4. LEVOTHYROXINE SODIUM\POTASSIUM IODIDE [Concomitant]
     Active Substance: LEVOTHYROXINE SODIUM\POTASSIUM IODIDE
     Indication: Prophylaxis

REACTIONS (5)
  - Fatigue [Recovered/Resolved]
  - Peripheral sensory neuropathy [Recovered/Resolved]
  - Hypothyroidism [Not Recovered/Not Resolved]
  - Hyperthyroidism [Recovered/Resolved]
  - Adrenalitis [Not Recovered/Not Resolved]

NARRATIVE: CASE EVENT DATE: 20210303
